FAERS Safety Report 6614465-8 (Version None)
Quarter: 2010Q1

REPORT INFORMATION
  Report Type: 
  Country: None (occurrence: None)
  Receive Date: 20100304
  Receipt Date: 20100304
  Transmission Date: 20100710
  Serious: Yes (Other)
  Sender: FDA-Public Use
  Company Number: None

PATIENT
  Sex: Male
  Weight: 93.3503 kg

DRUGS (17)
  1. ROSUVASTATIN [Suspect]
     Indication: CORONARY ARTERY DISEASE
     Dosage: DAILY PO, 3-4 WEEKS
     Route: 048
  2. ROSUVASTATIN [Suspect]
     Indication: DYSLIPIDAEMIA
     Dosage: DAILY PO, 3-4 WEEKS
     Route: 048
  3. ALLOPURINOL [Concomitant]
  4. OMEPRAZOLE [Concomitant]
  5. CLOPIDOGREL [Concomitant]
  6. PLAVIX [Concomitant]
  7. METFORMIN HCL [Concomitant]
  8. GLUCOPHAGE XR [Concomitant]
  9. LANTUS [Concomitant]
  10. INSULIN ASPART -NOVOLOG FLEXPEN [Concomitant]
  11. METOPROLOL SUCCINATE [Concomitant]
  12. TOPROL-XL [Concomitant]
  13. NIASPAN [Concomitant]
  14. ZETIA [Concomitant]
  15. MICARDIS [Concomitant]
  16. BUSPIRONE HCL [Concomitant]
  17. OXYCODONE 5/APAP [Concomitant]

REACTIONS (1)
  - BLOOD CREATININE INCREASED [None]
